FAERS Safety Report 6493273-5 (Version None)
Quarter: 2009Q4

REPORT INFORMATION
  Report Type: 
  Country: None (occurrence: None)
  Receive Date: 20091209
  Receipt Date: 20091202
  Transmission Date: 20100525
  Serious: Yes (Other)
  Sender: FDA-Public Use
  Company Number: TPA2009A04028

PATIENT
  Age: 52 Year
  Sex: Male
  Weight: 130.1823 kg

DRUGS (4)
  1. ACTOS [Suspect]
     Indication: TYPE 2 DIABETES MELLITUS
     Dosage: 15 MG, 1 IN 1 D, PER ORAL; 30 MG, 1 IN 1 D, PER ORAL
     Route: 048
     Dates: end: 20090101
  2. ACTOS [Suspect]
     Indication: TYPE 2 DIABETES MELLITUS
     Dosage: 15 MG, 1 IN 1 D, PER ORAL; 30 MG, 1 IN 1 D, PER ORAL
     Route: 048
     Dates: end: 20090101
  3. CHEMOTHERAPY (OTHER CHEMOTHERAPEUTICS) [Suspect]
     Indication: NON-HODGKIN'S LYMPHOMA
     Dates: start: 20090101
  4. METFORMIN HCL [Concomitant]

REACTIONS (3)
  - BLOOD GLUCOSE INCREASED [None]
  - GLYCOSYLATED HAEMOGLOBIN INCREASED [None]
  - NON-HODGKIN'S LYMPHOMA [None]
